FAERS Safety Report 5333138-5 (Version None)
Quarter: 2007Q2

REPORT INFORMATION
  Report Type: 
  Country: None (occurrence: None)
  Receive Date: 20070521
  Receipt Date: 20070521
  Transmission Date: 20071010
  Serious: Yes (Other)
  Sender: FDA-Public Use
  Company Number: None

PATIENT
  Sex: Male
  Weight: 74.8435 kg

DRUGS (1)
  1. PLAVIX [Suspect]
     Indication: TRANSIENT ISCHAEMIC ATTACK
     Dosage: 75 MG DAILY PO
     Route: 048
     Dates: start: 20060101, end: 20070519

REACTIONS (3)
  - COAGULOPATHY [None]
  - EPISTAXIS [None]
  - IMPAIRED WORK ABILITY [None]
